FAERS Safety Report 9986663 (Version 2)
Quarter: 2014Q1

REPORT INFORMATION
  Report Type: Report from Study
  Country: PR (occurrence: PR)
  Receive Date: 20140307
  Receipt Date: 20140307
  Transmission Date: 20141002
  Serious: Yes (Hospitalization, Other)
  Sender: FDA-Public Use
  Company Number: PR-ABBVIE-13P-131-1087394-00

PATIENT
  Age: 55 Year
  Sex: Female
  Weight: 81.72 kg

DRUGS (7)
  1. HUMIRA [Suspect]
     Indication: RHEUMATOID ARTHRITIS
     Route: 058
     Dates: start: 201302, end: 201303
  2. METHOTREXATE [Concomitant]
     Indication: RHEUMATOID ARTHRITIS
     Route: 058
  3. CALTRATE [Concomitant]
     Indication: PRODUCT USED FOR UNKNOWN INDICATION
     Route: 048
  4. FOLIC ACID [Concomitant]
     Indication: PRODUCT USED FOR UNKNOWN INDICATION
     Dosage: 1 TABLET X 5 DAYS A WEEK
     Route: 048
  5. OMEPRAZOLE [Concomitant]
     Indication: GASTROOESOPHAGEAL REFLUX DISEASE
     Route: 048
  6. OMEPRAZOLE [Concomitant]
     Indication: GASTRIC DISORDER
  7. METFORMIN [Concomitant]
     Indication: DIABETES MELLITUS
     Dosage: 1/2-TABLET
     Route: 048

REACTIONS (13)
  - Staphylococcal abscess [Unknown]
  - Subcutaneous abscess [Recovering/Resolving]
  - Subcutaneous abscess [Recovering/Resolving]
  - Subcutaneous abscess [Recovering/Resolving]
  - Subcutaneous abscess [Recovering/Resolving]
  - Subcutaneous abscess [Recovering/Resolving]
  - Groin abscess [Recovered/Resolved]
  - Groin abscess [Recovered/Resolved]
  - Groin abscess [Recovered/Resolved]
  - Groin abscess [Recovered/Resolved]
  - Groin abscess [Recovered/Resolved]
  - Groin abscess [Recovered/Resolved]
  - Groin abscess [Recovered/Resolved]
